FAERS Safety Report 16638291 (Version 1)
Quarter: 2019Q3

REPORT INFORMATION
  Report Type: Spontaneous
  Country: CA (occurrence: CA)
  Receive Date: 20190726
  Receipt Date: 20190726
  Transmission Date: 20191004
  Serious: Yes (Other)
  Sender: FDA-Public Use
  Company Number: CA-PFIZER INC-2019317166

PATIENT
  Age: 54 Year
  Sex: Female

DRUGS (1)
  1. PACLITAXEL. [Suspect]
     Active Substance: PACLITAXEL
     Indication: BREAST CANCER METASTATIC
     Dosage: UNK
     Dates: start: 20160616, end: 20160728

REACTIONS (8)
  - Neutropenia [Recovered/Resolved]
  - Drug intolerance [Unknown]
  - Infusion related reaction [Unknown]
  - Toxicity to various agents [Unknown]
  - Haematochezia [Unknown]
  - Haemoglobin decreased [Unknown]
  - Headache [Unknown]
  - Drug hypersensitivity [Unknown]
